FAERS Safety Report 5162350-3 (Version None)
Quarter: 2006Q4

REPORT INFORMATION
  Report Type: 
  Country: None (occurrence: None)
  Receive Date: 20061130
  Receipt Date: 20061120
  Transmission Date: 20070319
  Serious: Yes (Hospitalization)
  Sender: FDA-Public Use
  Company Number: ES-MERCK-0611ESP00021

PATIENT
  Age: 69 Year
  Sex: Male

DRUGS (3)
  1. ZETIA [Suspect]
     Indication: HYPERCHOLESTEROLAEMIA
     Route: 048
     Dates: start: 20050302, end: 20061001
  2. [THERAPY UNSPECIFIED] [Concomitant]
     Route: 065
  3. METFORMIN [Concomitant]
     Indication: DIABETES MELLITUS
     Route: 065
     Dates: start: 20040101

REACTIONS (2)
  - COLITIS [None]
  - SUBILEUS [None]
